FAERS Safety Report 17211750 (Version 1)
Quarter: 2019Q4

REPORT INFORMATION
  Report Type: Spontaneous
  Country: US (occurrence: US)
  Receive Date: 20191230
  Receipt Date: 20191230
  Transmission Date: 20200122
  Serious: No
  Sender: FDA-Public Use
  Company Number: US-AMGEN-USASP2019214405

PATIENT
  Sex: Female

DRUGS (20)
  1. POTASSIUM CHLORIDE. [Concomitant]
     Active Substance: POTASSIUM CHLORIDE
     Dosage: 20 MEQ/10
  2. CEFADROXIL. [Concomitant]
     Active Substance: CEFADROXIL
     Dosage: 500 MILLIGRAM
  3. METOPROLOL SUCCINATE. [Concomitant]
     Active Substance: METOPROLOL SUCCINATE
  4. ISOSORBIDE. [Concomitant]
     Active Substance: ISOSORBIDE
  5. PLAVIX [Concomitant]
     Active Substance: CLOPIDOGREL BISULFATE
     Dosage: 75 MILLIGRAM
  6. FUROSEMIDE. [Concomitant]
     Active Substance: FUROSEMIDE
     Dosage: 40 MILLIGRAM
  7. REPATHA [Suspect]
     Active Substance: EVOLOCUMAB
     Indication: MYOCARDIAL INFARCTION
     Dosage: 140 MILLIGRAM, Q2WK
     Route: 058
  8. CYCLOBENZAPRIN [Concomitant]
     Active Substance: CYCLOBENZAPRINE
     Dosage: 10 MILLIGRAM
  9. CHLO TUSS [Concomitant]
     Active Substance: CHLOPHEDIANOL HYDROCHLORIDE\DEXBROMPHENIRAMINE MALEATE\PHENYLEPHRINE HYDROCHLORIDE
  10. OXYCODONE/APAP [OXYCODONE;PARACETAMOL] [Concomitant]
     Dosage: 10-325 MILLIGRAM
  11. PANTOPRAZOLE [Concomitant]
     Active Substance: PANTOPRAZOLE
     Dosage: 40 MILLIGRAM
  12. REPATHA [Suspect]
     Active Substance: EVOLOCUMAB
     Indication: TYPE IIA HYPERLIPIDAEMIA
  13. PRADAXA [Concomitant]
     Active Substance: DABIGATRAN ETEXILATE MESYLATE
     Dosage: 150 MILLIGRAM
  14. IRON [Concomitant]
     Active Substance: IRON
  15. COLESTID [Concomitant]
     Active Substance: COLESTIPOL HYDROCHLORIDE
  16. CEFUROXIME. [Concomitant]
     Active Substance: CEFUROXIME
     Dosage: 500 MILLIGRAM
  17. LISINOPRIL. [Concomitant]
     Active Substance: LISINOPRIL
     Dosage: 10 MILLIGRAM
  18. SERTRALINE [Concomitant]
     Active Substance: SERTRALINE HYDROCHLORIDE
     Dosage: 100 MILLIGRAM
  19. PREDNISONE. [Concomitant]
     Active Substance: PREDNISONE
     Dosage: 10 MILLIGRAM
  20. CARVEDILOL. [Concomitant]
     Active Substance: CARVEDILOL
     Dosage: 12.5 MILLIGRAM

REACTIONS (1)
  - Blood cholesterol increased [Unknown]
